FAERS Safety Report 17255226 (Version 1)
Quarter: 2020Q1

REPORT INFORMATION
  Report Type: Report from Study
  Country: None (occurrence: US)
  Receive Date: 20200110
  Receipt Date: 20200110
  Transmission Date: 20200409
  Serious: Yes (Hospitalization, Other)
  Sender: FDA-Public Use
  Company Number: US-ABBVIE-19K-163-2899629-00

PATIENT
  Age: 69 Year
  Sex: Female
  Weight: 143.92 kg

DRUGS (12)
  1. AMLODIPINE BESYLATE. [Concomitant]
     Active Substance: AMLODIPINE BESYLATE
     Indication: HYPERTENSION
  2. HUMIRA [Suspect]
     Active Substance: ADALIMUMAB
     Indication: RHEUMATOID ARTHRITIS
     Route: 058
  3. XALATAN [Concomitant]
     Active Substance: LATANOPROST
     Indication: GLAUCOMA
     Dosage: 1 DROP IN EACH EYE IN AM
  4. BRIMONIDINE [Concomitant]
     Active Substance: BRIMONIDINE TARTRATE
     Indication: GLAUCOMA
     Dosage: 1 DROP IN EACH EYE IN AM?0.2% ORPH SOLUTION 5 ML
  5. DIPHENHYDRAMINE HYDROCHLORIDE. [Concomitant]
     Active Substance: DIPHENHYDRAMINE HYDROCHLORIDE
     Indication: EAR PAIN
  6. CLARITIN [Concomitant]
     Active Substance: LORATADINE
     Indication: EAR PAIN
  7. METOPROLOL TARTRATE. [Concomitant]
     Active Substance: METOPROLOL TARTRATE
     Indication: HYPERTENSION
     Dosage: 1 AND 1/2 DAILY
  8. TIMOLOL MALEATE. [Concomitant]
     Active Substance: TIMOLOL MALEATE
     Indication: GLAUCOMA
     Dosage: 1 DROP IN EACH EYE IN AM?0.5% ORPH SOLUTION?10 ML
  9. FLUOXETINE [Concomitant]
     Active Substance: FLUOXETINE HYDROCHLORIDE
     Indication: DEPRESSION
  10. METHOTREXATE. [Concomitant]
     Active Substance: METHOTREXATE
     Indication: RHEUMATOID ARTHRITIS
  11. FLUTICASONE. [Concomitant]
     Active Substance: FLUTICASONE
     Indication: EAR PAIN
     Dosage: 1 SPRAY IN EACH NOSTRIL AT BEDTIME?50 NASAL SPRAY
  12. ASPIRINE [Concomitant]
     Active Substance: ASPIRIN
     Indication: HYPERTENSION

REACTIONS (24)
  - Cardiac failure [Unknown]
  - Urinary tract infection [Unknown]
  - Blood potassium decreased [Unknown]
  - Urine leukocyte esterase positive [Unknown]
  - Blood albumin decreased [Unknown]
  - Haemoglobin decreased [Unknown]
  - Brain natriuretic peptide increased [Unknown]
  - Gait disturbance [Unknown]
  - Neutrophil count increased [Unknown]
  - Haematocrit decreased [Unknown]
  - Pulmonary oedema [Unknown]
  - Red cell distribution width increased [Unknown]
  - Protein urine present [Unknown]
  - Red blood cell count decreased [Unknown]
  - Mean cell haemoglobin concentration decreased [Unknown]
  - Blood urine present [Unknown]
  - Red blood cell sedimentation rate increased [Unknown]
  - Blood glucose increased [Unknown]
  - Atrial fibrillation [Unknown]
  - Blood creatinine increased [Unknown]
  - Blood calcium increased [Unknown]
  - Blood chloride decreased [Unknown]
  - Glomerular filtration rate abnormal [Unknown]
  - Urine abnormality [Unknown]

NARRATIVE: CASE EVENT DATE: 2019
